FAERS Safety Report 6804197-5 (Version None)
Quarter: 2010Q2

REPORT INFORMATION
  Report Type: 
  Country: None (occurrence: None)
  Receive Date: 20100628
  Receipt Date: 20070131
  Transmission Date: 20101027
  Serious: Yes (Other)
  Sender: FDA-Public Use
  Company Number: US-PFIZER INC-2007009133

PATIENT
  Sex: Male
  Weight: 60.5 kg

DRUGS (9)
  1. SUTENT [Suspect]
     Indication: RENAL CELL CARCINOMA
     Dates: start: 20070126, end: 20070130
  2. SORBITOL [Concomitant]
  3. HYDROCODONE [Concomitant]
  4. PERCOCET [Concomitant]
  5. CATAPRES [Concomitant]
  6. TENORMIN [Concomitant]
  7. SENSIPAR [Concomitant]
  8. DILANTIN [Concomitant]
  9. PHOSLO [Concomitant]

REACTIONS (1)
  - HYPOGLYCAEMIA [None]
